FAERS Safety Report 8433459-3 (Version None)
Quarter: 2012Q2

REPORT INFORMATION
  Report Type: 
  Country: None (occurrence: None)
  Receive Date: 20120613
  Receipt Date: 20120601
  Transmission Date: 20120825
  Serious: Yes (Death)
  Sender: FDA-Public Use
  Company Number: NO-ASTRAZENECA-2012SE19643

PATIENT
  Age: 96 Year
  Sex: Female

DRUGS (7)
  1. IMDUR [Concomitant]
  2. METOPROLOL SUCCINATE [Concomitant]
  3. BUMETANIDE [Concomitant]
  4. DIGITOXIN TAB [Suspect]
     Route: 065
  5. WARFARIN SODIUM [Concomitant]
  6. SEROQUEL [Suspect]
     Route: 048
  7. RAMIPRIL [Suspect]
     Route: 065

REACTIONS (5)
  - RENAL FAILURE ACUTE [None]
  - TOXICITY TO VARIOUS AGENTS [None]
  - DEATH [None]
  - NAUSEA [None]
  - VOMITING [None]
